FAERS Safety Report 7579751-6 (Version None)
Quarter: 2011Q2

REPORT INFORMATION
  Report Type: 
  Country: None (occurrence: None)
  Receive Date: 20110622
  Receipt Date: 20110607
  Transmission Date: 20111010
  Serious: Yes (Other)
  Sender: FDA-Public Use
  Company Number: 20110224

PATIENT
  Age: 60 Year
  Sex: Female

DRUGS (1)
  1. DEXAMETHASONE SODIUM POSPHATE [Suspect]
     Indication: INFLAMMATION
     Dosage: 0.2 CC INTRAMUSCULAR
     Route: 030

REACTIONS (1)
  - VIITH NERVE PARALYSIS [None]
